FAERS Safety Report 14098162 (Version 1)
Quarter: 2017Q4

REPORT INFORMATION
  Report Type: Spontaneous
  Country: US (occurrence: US)
  Receive Date: 20171017
  Receipt Date: 20171017
  Transmission Date: 20180321
  Serious: No
  Sender: FDA-Public Use
  Company Number: US-TARO-2016TAR00793

PATIENT
  Age: 6 Year
  Sex: Male
  Weight: 20.86 kg

DRUGS (2)
  1. LORATADINE SYRUP (LORATADINE ORAL SOLUTION USP) 5MG/5ML [Suspect]
     Active Substance: LORATADINE
     Indication: SEASONAL ALLERGY
     Dosage: 1 DOSAGE UNITS, 1X/DAY
     Route: 048
     Dates: start: 201609, end: 201609
  2. VITAMIN [Concomitant]
     Active Substance: VITAMINS

REACTIONS (2)
  - Cough [Recovered/Resolved]
  - Sinus disorder [Recovered/Resolved]

NARRATIVE: CASE EVENT DATE: 201609
